FAERS Safety Report 12626816 (Version 3)
Quarter: 2016Q3

REPORT INFORMATION
  Report Type: Spontaneous
  Country: IT (occurrence: IT)
  Receive Date: 20160805
  Receipt Date: 20160920
  Transmission Date: 20161109
  Serious: Yes (Hospitalization, Other)
  Sender: FDA-Public Use
  Company Number: IT-JNJFOC-20160725860

PATIENT
  Age: 26 Year
  Sex: Male
  Weight: 80 kg

DRUGS (6)
  1. MINOXIDIL. [Suspect]
     Active Substance: MINOXIDIL
     Indication: ANDROGENETIC ALOPECIA
     Route: 061
     Dates: start: 20151101, end: 20160525
  2. PROPECIA [Suspect]
     Active Substance: FINASTERIDE
     Indication: ANDROGENETIC ALOPECIA
     Route: 048
  3. HYDROCORTISONE. [Suspect]
     Active Substance: HYDROCORTISONE
     Indication: ANDROGENETIC ALOPECIA
     Route: 061
  4. PROGESTERONE. [Suspect]
     Active Substance: PROGESTERONE
     Indication: ANDROGENETIC ALOPECIA
     Route: 061
     Dates: start: 20151101, end: 20160525
  5. ESTRADIOL. [Suspect]
     Active Substance: ESTRADIOL
     Indication: ANDROGENETIC ALOPECIA
     Route: 061
     Dates: start: 20151101, end: 20160525
  6. MINOXIDIL. [Suspect]
     Active Substance: MINOXIDIL
     Route: 061

REACTIONS (2)
  - Cerebral infarction [Recovered/Resolved with Sequelae]
  - Wrong technique in product usage process [Recovered/Resolved with Sequelae]

NARRATIVE: CASE EVENT DATE: 20160525
